FAERS Safety Report 8034516 (Version 2)
Quarter: 2013Q2

REPORT INFORMATION
  Report Type: Spontaneous
  Country: US (occurrence: None)
  Receive Date: 20110707
  Receipt Date: 20120705
  Transmission Date: 20140414
  Serious: Yes (Hospitalization)
  Sender: FDA-Public Use
  Company Number: US-CYPR-2010-000014

PATIENT
  Age: 58 Year
  Sex: Male
  Weight: 91.17 kg

DRUGS (9)
  1. CLOPIDOGREL [Suspect]
     Indication: ANTIPLATELET THERAPY
     Route: 048
     Dates: start: 20101218, end: 20101225
  2. ASPIRIN [Suspect]
     Indication: CORONARY ARTERY DISEASE
     Route: 048
     Dates: start: 20110111, end: 20110115
  3. ATARAX [Concomitant]
  4. AMBIEN [Concomitant]
  5. LISINOPRIL [Concomitant]
  6. PREDNISONE [Concomitant]
  7. ATORVASTATIN [Concomitant]
  8. NORVASC [Concomitant]
  9. CYPHER STENT [Concomitant]

REACTIONS (2)
  - SPLENIC RUPTURE [None]
  - MULTI-ORGAN FAILURE [None]
